FAERS Safety Report 14169408 (Version 1)
Quarter: 2017Q4

REPORT INFORMATION
  Report Type: Spontaneous
  Country: US (occurrence: US)
  Receive Date: 20171107
  Receipt Date: 20171107
  Transmission Date: 20180321
  Serious: Yes (Hospitalization, Other)
  Sender: FDA-Public Use
  Company Number: US-PFM-2017-09918

PATIENT

DRUGS (1)
  1. PROPRANOLOL HYDROCHLORIDE. [Suspect]
     Active Substance: PROPRANOLOL HYDROCHLORIDE
     Indication: RESTRICTIVE CARDIOMYOPATHY
     Dosage: 3 UNK DOSES, UNK

REACTIONS (6)
  - Bradycardia [Recovered/Resolved]
  - Off label use [Unknown]
  - Drug intolerance [Recovered/Resolved]
  - Drug administered to patient of inappropriate age [Unknown]
  - Cyanosis [Recovered/Resolved]
  - Product use in unapproved indication [Unknown]
